FAERS Safety Report 21939992 (Version 1)
Quarter: 2023Q1

REPORT INFORMATION
  Report Type: Report from Study
  Country: US (occurrence: US)
  Receive Date: 20230201
  Receipt Date: 20230201
  Transmission Date: 20230418
  Serious: No
  Sender: FDA-Public Use
  Company Number: US-EXELIXIS-CABO-22049515

PATIENT
  Age: 70 Year
  Sex: Female
  Weight: 100.59 kg

DRUGS (2)
  1. CABOMETYX [Suspect]
     Active Substance: CABOZANTINIB S-MALATE
     Indication: Thyroid cancer
     Dosage: 60 MG, QD
     Route: 048
     Dates: start: 20220211
  2. CABOMETYX [Suspect]
     Active Substance: CABOZANTINIB S-MALATE
     Dosage: 60 MG, QD
     Route: 048

REACTIONS (10)
  - Hypersomnia [Unknown]
  - Ear pain [Unknown]
  - Urinary tract infection [Unknown]
  - Pain [Unknown]
  - Epistaxis [Unknown]
  - Headache [Unknown]
  - Asthenia [Unknown]
  - Decreased appetite [Unknown]
  - Dysgeusia [Unknown]
  - Illness [Unknown]

NARRATIVE: CASE EVENT DATE: 20220201
